FAERS Safety Report 9110566 (Version 1)
Quarter: 2013Q1

REPORT INFORMATION
  Report Type: Spontaneous
  Country: US (occurrence: US)
  Receive Date: 20130219
  Receipt Date: 20130219
  Transmission Date: 20140127
  Serious: No
  Sender: FDA-Public Use
  Company Number: US-BRISTOL-MYERS SQUIBB COMPANY-16929333

PATIENT
  Age: 55 Year
  Sex: Female
  Weight: 61.22 kg

DRUGS (10)
  1. ORENCIA [Suspect]
     Indication: RHEUMATOID ARTHRITIS
     Dosage: LAST INF:21AUG2012
     Route: 042
     Dates: start: 20100209
  2. PAXIL [Concomitant]
  3. VYTORIN [Concomitant]
  4. KLONOPIN [Concomitant]
  5. LYRICA [Concomitant]
  6. ARAVA [Concomitant]
  7. CELEBREX [Concomitant]
  8. ZANTAC [Concomitant]
  9. PLAVIX [Concomitant]
  10. SULFA [Concomitant]

REACTIONS (3)
  - Neuropathy peripheral [Not Recovered/Not Resolved]
  - Muscle contracture [Not Recovered/Not Resolved]
  - Balance disorder [Unknown]
